FAERS Safety Report 6563777-5 (Version None)
Quarter: 2010Q1

REPORT INFORMATION
  Report Type: 
  Country: None (occurrence: None)
  Receive Date: 20100130
  Receipt Date: 20091231
  Transmission Date: 20100710
  Serious: No
  Sender: FDA-Public Use
  Company Number: US-ABBOTT-09P-163-0617151-00

PATIENT
  Sex: Male
  Weight: 84.444 kg

DRUGS (7)
  1. HUMIRA [Suspect]
     Indication: RHEUMATOID ARTHRITIS
     Dates: start: 20071231, end: 20091101
  2. HUMIRA [Suspect]
  3. NSAID'S [Concomitant]
     Indication: DRUG USE FOR UNKNOWN INDICATION
  4. COX2 INHIBITORS [Concomitant]
     Indication: DRUG USE FOR UNKNOWN INDICATION
  5. ANALGESICS [Concomitant]
     Indication: DRUG USE FOR UNKNOWN INDICATION
  6. PRILOSEC [Concomitant]
     Indication: DRUG USE FOR UNKNOWN INDICATION
  7. SIMVASTATIN [Concomitant]
     Indication: DRUG USE FOR UNKNOWN INDICATION

REACTIONS (3)
  - INFLUENZA [None]
  - JOINT STIFFNESS [None]
  - NAUSEA [None]
